FAERS Safety Report 10904942 (Version 2)
Quarter: 2015Q2

REPORT INFORMATION
  Report Type: Spontaneous
  Country: PL (occurrence: PL)
  Receive Date: 20150311
  Receipt Date: 20150410
  Transmission Date: 20150821
  Serious: Yes (Disabling, Other)
  Sender: FDA-Public Use
  Company Number: PL-BAXTER-2015BAX012262

PATIENT
  Age: 48 Year
  Sex: Female

DRUGS (3)
  1. MITOXANTRONE [Suspect]
     Active Substance: MITOXANTRONE HYDROCHLORIDE
     Indication: NEUROMYELITIS OPTICA
     Route: 065
  2. ENDOXAN [Suspect]
     Active Substance: CYCLOPHOSPHAMIDE
     Indication: DISEASE RECURRENCE
     Dosage: UNTIL NOVEMBER 2013, A TOTAL OF 34.6 G/M2
     Route: 065
     Dates: start: 201201
  3. ENDOXAN [Suspect]
     Active Substance: CYCLOPHOSPHAMIDE
     Indication: NEUROMYELITIS OPTICA
     Dosage: EVERY 6-8 WEEKS
     Route: 065
     Dates: start: 201003

REACTIONS (3)
  - Disease progression [Unknown]
  - Disease recurrence [Recovered/Resolved]
  - Neuromyelitis optica [Recovered/Resolved]
